FAERS Safety Report 13668040 (Version 6)
Quarter: 2018Q2

REPORT INFORMATION
  Report Type: Spontaneous
  Country: US (occurrence: US)
  Receive Date: 20170620
  Receipt Date: 20180612
  Transmission Date: 20180711
  Serious: Yes (Hospitalization)
  Sender: FDA-Public Use
  Company Number: US-PFIZER INC-2017257864

PATIENT
  Age: 82 Year
  Sex: Female
  Weight: 79.83 kg

DRUGS (11)
  1. LYRICA [Suspect]
     Active Substance: PREGABALIN
     Indication: PAIN
     Dosage: 100 MG, 2X/DAY [TAKING 1 CAPSULE IN THE MORNING AND 1 CAPSULE AT NIGHT]
     Route: 048
     Dates: start: 20170603, end: 2017
  2. LYRICA [Suspect]
     Active Substance: PREGABALIN
     Indication: NECK PAIN
     Dosage: 100 MG, 1X/DAY (ONE AT NIGHT/ IN THE EVENING)
     Route: 048
     Dates: start: 2017
  3. LYRICA [Suspect]
     Active Substance: PREGABALIN
     Dosage: UNK
     Dates: start: 201707
  4. SYNTHROID [Concomitant]
     Active Substance: LEVOTHYROXINE SODIUM
     Indication: THYROID DISORDER
     Dosage: ^112 MG^, ONCE A DAY IN THE MORNING
     Route: 048
  5. SYNTHROID [Concomitant]
     Active Substance: LEVOTHYROXINE SODIUM
     Dosage: ^125 OR SOMETHING^ (UNITS UNSPECIFIED), ONCE DAILY IN THE MORNING
     Route: 048
  6. LISINOPRIL. [Concomitant]
     Active Substance: LISINOPRIL
     Indication: BLOOD PRESSURE ABNORMAL
     Dosage: ONE TABLET, ONCE DAILY, IN THE MORNING
     Route: 048
     Dates: start: 201711
  7. LOPERAMIDE [Concomitant]
     Active Substance: LOPERAMIDE
     Indication: INTESTINAL RESECTION
     Dosage: UNK
     Dates: start: 201001
  8. WELLBUTRIN [Concomitant]
     Active Substance: BUPROPION HYDROCHLORIDE
     Indication: ANXIETY
     Dosage: 100 (UNITS UNSPECIFIED), ONCE DAILY (IN THE MORNING)
     Route: 048
     Dates: start: 2008
  9. LYRICA [Suspect]
     Active Substance: PREGABALIN
     Indication: NEURALGIA
     Dosage: 100 MG, 3X/DAY
     Route: 048
     Dates: start: 20170523, end: 2017
  10. BUPROPION. [Concomitant]
     Active Substance: BUPROPION
     Indication: DEPRESSION
     Dosage: 100 MG, 1X/DAY
     Dates: start: 2008
  11. SYNTHROID [Concomitant]
     Active Substance: LEVOTHYROXINE SODIUM
     Dosage: UNK
     Dates: start: 1975

REACTIONS (9)
  - Joint swelling [Not Recovered/Not Resolved]
  - Contusion [Not Recovered/Not Resolved]
  - Dizziness [Not Recovered/Not Resolved]
  - Vision blurred [Not Recovered/Not Resolved]
  - Somnolence [Not Recovered/Not Resolved]
  - Dry mouth [Not Recovered/Not Resolved]
  - Peripheral swelling [Not Recovered/Not Resolved]
  - Rash macular [Not Recovered/Not Resolved]
  - Weight increased [Not Recovered/Not Resolved]

NARRATIVE: CASE EVENT DATE: 2017
